FAERS Safety Report 7936610-4 (Version None)
Quarter: 2011Q4

REPORT INFORMATION
  Report Type: 
  Country: None (occurrence: None)
  Receive Date: 20111123
  Receipt Date: 20111115
  Transmission Date: 20120403
  Serious: Yes (Other)
  Sender: FDA-Public Use
  Company Number: US-MYLANLABS-2011S1023613

PATIENT
  Age: 32 Year
  Sex: Female

DRUGS (5)
  1. BUSPAR [Concomitant]
  2. TRAZODONE HCL [Concomitant]
  3. CELEXA [Concomitant]
  4. SEROQUEL [Concomitant]
  5. RISPERIDONE [Suspect]
     Indication: BIPOLAR I DISORDER
     Route: 048
     Dates: start: 20111105, end: 20111107

REACTIONS (7)
  - URINARY INCONTINENCE [None]
  - ANXIETY [None]
  - DYSTONIA [None]
  - LIP SWELLING [None]
  - HYPERSENSITIVITY [None]
  - CONFUSIONAL STATE [None]
  - HYPERHIDROSIS [None]
